FAERS Safety Report 8791534 (Version 1)
Quarter: 2012Q4

REPORT INFORMATION
  Report Type: Spontaneous
  Country: CA (occurrence: None)
  Receive Date: 20120913
  Receipt Date: 20120913
  Transmission Date: 20130627
  Serious: Yes (Hospitalization)
  Sender: FDA-Public Use
  Company Number: JPI-P-024932

PATIENT
  Age: 75 Year
  Sex: Female

DRUGS (15)
  1. XYREM (500 MILLIGRAM/MILLILITERS, SOLUTION)(SODIUM OXYBATE) [Suspect]
     Indication: CATAPLEXY
     Dosage: (4.5 gm, 3 in 1 d)
     Route: 048
     Dates: start: 20070817, end: 20090512
  2. XYREM (500 MILLIGRAM/MILLILITERS, SOLUTION)(SODIUM OXYBATE) [Suspect]
     Indication: CATAPLEXY
     Dosage: (6 gm, 2 in 1 d)
     Route: 048
     Dates: start: 20090513
  3. METHYLPHENIDATE HYDROCHLORIDE [Concomitant]
  4. CLOMIPRAMINE HYDROCHLORIDE [Concomitant]
  5. CITALOPRAM [Concomitant]
  6. INDAPAMIDE [Concomitant]
  7. QUININE SULFATE [Concomitant]
  8. PANTOPRAZOLE [Concomitant]
  9. DOCUSATE SODIUM(CAPSULES) [Concomitant]
  10. CALCIUM [Concomitant]
  11. FERROUS SULFATE [Concomitant]
  12. VITAMIN B-32 [Concomitant]
  13. ALENDRONATE-CHOLECALCIFEROL [Concomitant]
  14. HYDROCONTIN [Concomitant]
  15. CELECOXIB [Concomitant]

REACTIONS (5)
  - Vomiting [None]
  - Headache [None]
  - Dehydration [None]
  - Nausea [None]
  - Postoperative adhesion [None]
